FAERS Safety Report 7464209-5 (Version None)
Quarter: 2011Q2

REPORT INFORMATION
  Report Type: 
  Country: None (occurrence: None)
  Receive Date: 20110506
  Receipt Date: 20110502
  Transmission Date: 20111010
  Serious: Yes (Hospitalization)
  Sender: FDA-Public Use
  Company Number: DE-GENENTECH-284906

PATIENT
  Sex: Male
  Weight: 81 kg

DRUGS (12)
  1. RITUXAN [Suspect]
     Indication: DIFFUSE LARGE B-CELL LYMPHOMA
     Dosage: 375 MG/M2, UNK
     Route: 042
     Dates: start: 20090429, end: 20090610
  2. CYCLOPHOSPHAMIDE [Suspect]
     Dosage: UNK
     Route: 042
     Dates: start: 20090428, end: 20090610
  3. RITUXAN [Suspect]
     Dosage: UNK
     Route: 042
     Dates: start: 20090428, end: 20090610
  4. PLACEBO [Suspect]
     Dosage: UNK
     Route: 042
     Dates: start: 20090428, end: 20090610
  5. DOXORUBICIN HCL [Suspect]
     Indication: DIFFUSE LARGE B-CELL LYMPHOMA
     Dosage: 50 MG/M2, UNK
     Route: 042
     Dates: start: 20090430, end: 20090610
  6. VINCRISTINE [Suspect]
     Indication: DIFFUSE LARGE B-CELL LYMPHOMA
     Dosage: 2 MG, UNK
     Route: 042
     Dates: start: 20090430, end: 20090610
  7. PREDNISONE [Suspect]
     Indication: DIFFUSE LARGE B-CELL LYMPHOMA
     Dosage: 100 MG, UNK
     Route: 048
     Dates: start: 20090430, end: 20090610
  8. AVASTIN [Suspect]
     Dosage: UNK
     Route: 042
     Dates: start: 20090428, end: 20090610
  9. PREDNISONE TAB [Suspect]
     Dosage: UNK
     Route: 042
     Dates: start: 20090428, end: 20090610
  10. VINCRISTINE [Suspect]
     Dosage: UNK
     Route: 042
     Dates: start: 20090428, end: 20090610
  11. CYCLOPHOSPHAMIDE [Suspect]
     Indication: DIFFUSE LARGE B-CELL LYMPHOMA
     Dosage: 750 MG/M2, UNK
     Route: 042
     Dates: start: 20090430, end: 20090610
  12. DOXORUBICIN HCL [Suspect]
     Dosage: UNK
     Route: 042
     Dates: start: 20090428, end: 20090610

REACTIONS (2)
  - PULMONARY EMBOLISM [None]
  - PYREXIA [None]
